FAERS Safety Report 16694848 (Version 1)
Quarter: 2019Q3

REPORT INFORMATION
  Report Type: Spontaneous
  Country: US (occurrence: US)
  Receive Date: 20190812
  Receipt Date: 20190812
  Transmission Date: 20191004
  Serious: No
  Sender: FDA-Public Use
  Company Number: US-ELI_LILLY_AND_COMPANY-US201907012969

PATIENT
  Sex: Female

DRUGS (1)
  1. EMGALITY [Suspect]
     Active Substance: GALCANEZUMAB-GNLM
     Indication: MIGRAINE
     Dosage: UNK, UNKNOWN
     Route: 065
     Dates: start: 201904

REACTIONS (7)
  - Abnormal dreams [Unknown]
  - Insomnia [Unknown]
  - Fatigue [Unknown]
  - Weight increased [Unknown]
  - Headache [Unknown]
  - Alopecia [Unknown]
  - Arthralgia [Unknown]
